FAERS Safety Report 8015892-7 (Version None)
Quarter: 2011Q4

REPORT INFORMATION
  Report Type: 
  Country: None (occurrence: None)
  Receive Date: 20111230
  Receipt Date: 20111219
  Transmission Date: 20120403
  Serious: Yes (Death)
  Sender: FDA-Public Use
  Company Number: US-PFIZER INC-2011311393

PATIENT
  Age: 24 Year
  Sex: Male

DRUGS (4)
  1. OXYCODONE HCL [Suspect]
     Route: 048
  2. ACETAMINOPHEN AND HYDROCODONE BITARTRATE [Suspect]
     Route: 048
  3. FLUOXETINE HCL [Suspect]
     Route: 048
  4. MORPHINE SULFATE [Suspect]
     Route: 048

REACTIONS (3)
  - RESPIRATORY ARREST [None]
  - DRUG ABUSE [None]
  - CARDIAC ARREST [None]
